FAERS Safety Report 6809872-4 (Version None)
Quarter: 2010Q2

REPORT INFORMATION
  Report Type: 
  Country: None (occurrence: None)
  Receive Date: 20100630
  Receipt Date: 20100624
  Transmission Date: 20101027
  Serious: Yes (Hospitalization)
  Sender: FDA-Public Use
  Company Number: DE-ABBOTT-10P-062-0653405-00

PATIENT
  Age: 50 Year
  Sex: Male

DRUGS (8)
  1. VALPROATE SODIUM [Suspect]
     Indication: DRUG USE FOR UNKNOWN INDICATION
     Route: 048
     Dates: start: 20100114, end: 20100114
  2. VALPROATE SODIUM [Suspect]
     Route: 048
     Dates: start: 20100115, end: 20100117
  3. VALPROATE SODIUM [Suspect]
     Route: 048
     Dates: start: 20100118, end: 20100118
  4. VALPROATE SODIUM [Suspect]
     Route: 048
     Dates: start: 20100119
  5. STRATTERA [Concomitant]
     Indication: DRUG USE FOR UNKNOWN INDICATION
     Dates: end: 20091222
  6. LEVOTHYROXINE SODIUM [Concomitant]
     Indication: DRUG USE FOR UNKNOWN INDICATION
     Dates: start: 20100212
  7. LYRICA [Concomitant]
     Indication: DRUG USE FOR UNKNOWN INDICATION
     Dates: end: 20100117
  8. ANTIDEPRESSANTS [Concomitant]
     Indication: DRUG USE FOR UNKNOWN INDICATION
     Dates: end: 20100113

REACTIONS (3)
  - ARTHRALGIA [None]
  - ERYTHEMA [None]
  - SWELLING [None]
